FAERS Safety Report 6964064-3 (Version None)
Quarter: 2010Q3

REPORT INFORMATION
  Report Type: 
  Country: None (occurrence: None)
  Receive Date: 20100902
  Receipt Date: 20100902
  Transmission Date: 20110219
  Serious: Yes (Other)
  Sender: FDA-Public Use
  Company Number: None

PATIENT
  Age: 64 Year
  Sex: Female

DRUGS (3)
  1. KEPPRA [Suspect]
     Indication: CONVULSION
     Dosage: 750MG BID PO
     Route: 048
  2. OMEPRAZOLE [Concomitant]
  3. ACIPHEX [Concomitant]

REACTIONS (1)
  - NEUTROPHIL COUNT DECREASED [None]
